FAERS Safety Report 17197567 (Version 1)
Quarter: 2019Q4

REPORT INFORMATION
  Report Type: Other
  Country: ES (occurrence: US)
  Receive Date: 20191224
  Receipt Date: 20191224
  Transmission Date: 20200122
  Serious: Yes (Life-Threatening, Hospitalization, Other)
  Sender: FDA-Public Use
  Company Number: ES-ALSI-201900540

PATIENT
  Age: 34 Year
  Sex: Female
  Weight: 60 kg

DRUGS (11)
  1. AMOXICILINA / ACIDO CLAVULANICO DOMAC [Suspect]
     Active Substance: AMOXICILLIN\CLAVULANIC ACID
     Route: 042
  2. RANITIDINE. [Suspect]
     Active Substance: RANITIDINE
     Route: 042
     Dates: start: 20190214
  3. FILGRASTIM [Suspect]
     Active Substance: FILGRASTIM
     Route: 065
     Dates: start: 20190224
  4. OMEPRAZOLE. [Suspect]
     Active Substance: OMEPRAZOLE
     Route: 042
     Dates: start: 20190214
  5. MEROPENEM ACCORD [Suspect]
     Active Substance: MEROPENEM
     Route: 042
     Dates: start: 20190224
  6. METAMIZOL [Suspect]
     Active Substance: METAMIZOLE SODIUM
     Route: 042
     Dates: start: 20190214
  7. PARACETAMOL [Suspect]
     Active Substance: ACETAMINOPHEN
     Route: 065
     Dates: start: 20190217
  8. LORAZEPAM ARISTO [Suspect]
     Active Substance: LORAZEPAM
     Route: 042
     Dates: start: 20190214
  9. OXYGEN USP AND NITROUS OXIDE MIXTURE [Suspect]
     Active Substance: NITROUS OXIDE\OXYGEN
     Indication: ANAESTHESIA
     Route: 055
     Dates: start: 20190215, end: 20190215
  10. PARACETAMOL ABAMED [Suspect]
     Active Substance: ACETAMINOPHEN
     Route: 042
     Dates: start: 20190214, end: 20190216
  11. METAMIZOL HARKLEY [Suspect]
     Active Substance: METAMIZOLE MAGNESIUM
     Route: 042
     Dates: start: 20190214, end: 20190216

REACTIONS (3)
  - Anaemia [Unknown]
  - Agranulocytosis [Unknown]
  - Neutropenia [Unknown]

NARRATIVE: CASE EVENT DATE: 20190223
